FAERS Safety Report 22221987 (Version 7)
Quarter: 2023Q2

REPORT INFORMATION
  Report Type: Report from Study
  Country: PT (occurrence: PT)
  Receive Date: 20230418
  Receipt Date: 20230509
  Transmission Date: 20230721
  Serious: Yes (Hospitalization)
  Sender: FDA-Public Use
  Company Number: PT-ABBVIE-4732167

PATIENT
  Age: 78 Year
  Sex: Female

DRUGS (9)
  1. CARBIDOPA\LEVODOPA [Suspect]
     Active Substance: CARBIDOPA\LEVODOPA
     Indication: Parkinson^s disease
     Dosage: 20 MG PLUS 5 MG, MORN:12.5CC;MAINT:3.6CC/H;EXTR:2.5CC
     Route: 050
     Dates: end: 20230414
  2. CARBIDOPA\LEVODOPA [Suspect]
     Active Substance: CARBIDOPA\LEVODOPA
     Dosage: 20 MG PLUS 5 MG, MORN:16.5CC;MAINT:5CC/H;EXTR:1CC
     Route: 050
     Dates: start: 20200916
  3. CARBIDOPA\LEVODOPA [Suspect]
     Active Substance: CARBIDOPA\LEVODOPA
     Dosage: 20 MG PLUS 5 MG, MORN:10CC;MAINT:3CC/H;EXTR:2.5CC
     Route: 050
     Dates: start: 20230414, end: 20230415
  4. CARBIDOPA\LEVODOPA [Suspect]
     Active Substance: CARBIDOPA\LEVODOPA
     Dosage: 20 MG PLUS 5 MG, MORN:10CC;MAINT:3CC/H;EXTR:2.5CC
     Route: 050
     Dates: start: 20230416, end: 20230418
  5. CARBIDOPA\LEVODOPA [Suspect]
     Active Substance: CARBIDOPA\LEVODOPA
     Dosage: 20 MG PLUS 5 MG, MORN:10CC;MAINT:3.2CC/H;EXTR:2CC?LAST ADMIN DATE: APR 2023
     Route: 050
     Dates: start: 20230418, end: 20230426
  6. CARBIDOPA\LEVODOPA [Suspect]
     Active Substance: CARBIDOPA\LEVODOPA
     Dosage: 20 MG PLUS 5 MG, MORN:11CC;MAINT:3.2CC/H;EXTR:2.5CC
     Route: 050
     Dates: start: 20230426
  7. MEMANTINE [Concomitant]
     Active Substance: MEMANTINE
     Indication: Dementia
     Dosage: BEFORE DUODOPA
     Route: 048
  8. RIVASTIGMINE [Concomitant]
     Active Substance: RIVASTIGMINE
     Indication: Dementia
     Dosage: BEFORE DUODOPA
     Route: 062
  9. ALPRAZOLAM [Concomitant]
     Active Substance: ALPRAZOLAM
     Indication: Anxiety
     Dosage: BEFORE DUODOPA
     Route: 048

REACTIONS (4)
  - Femoral neck fracture [Recovered/Resolved]
  - Fall [Recovered/Resolved]
  - On and off phenomenon [Recovered/Resolved]
  - Tremor [Recovered/Resolved]

NARRATIVE: CASE EVENT DATE: 20230401
